FAERS Safety Report 8397820 (Version 3)
Quarter: 2013Q3

REPORT INFORMATION
  Report Type: Report from Study
  Country: GP (occurrence: GP)
  Receive Date: 20120209
  Receipt Date: 20130711
  Transmission Date: 20140515
  Serious: Yes (Death, Hospitalization)
  Sender: FDA-Public Use
  Company Number: GP-ROCHE-1033332

PATIENT
  Age: 61 Year
  Sex: Female
  Weight: 65 kg

DRUGS (4)
  1. TRASTUZUMAB [Suspect]
     Indication: BREAST CANCER METASTATIC
     Dosage: DOSE OF LAST TRASTUZUMAB TAKEN:390 MG, LAST DOSE PRIOR TO SAE 10 JAN 2012
     Route: 042
     Dates: start: 20110721
  2. DOCETAXEL [Suspect]
     Indication: BREAST CANCER METASTATIC
     Dosage: DOSE OF LAST DOCETAXEL TAKEN:130 MG, LAST DOSE PRIOR TO SAE 10 JAN 2012
     Route: 042
     Dates: start: 20110721
  3. ENALAPRIL [Concomitant]
     Indication: HYPERTENSION
     Route: 065
     Dates: start: 2004
  4. ZOLEDRONIC ACID [Concomitant]
     Indication: METASTASES TO BONE
     Route: 065
     Dates: start: 20110901

REACTIONS (1)
  - Pulmonary embolism [Fatal]
